FAERS Safety Report 6132035-5 (Version None)
Quarter: 2009Q1

REPORT INFORMATION
  Report Type: 
  Country: None (occurrence: None)
  Receive Date: 20090325
  Receipt Date: 20090313
  Transmission Date: 20090719
  Serious: Yes (Other)
  Sender: FDA-Public Use
  Company Number: JP-ROCHE-620403

PATIENT
  Sex: Male
  Weight: 18 kg

DRUGS (2)
  1. TAMIFLU [Suspect]
     Indication: INFLUENZA
     Dosage: NAME RPTD AS TAMIFLU DRY SYRUP 3%
     Route: 048
     Dates: start: 20090228, end: 20090228
  2. PULSMARIN A [Concomitant]
     Route: 048
     Dates: start: 20090228, end: 20090228

REACTIONS (1)
  - ABNORMAL BEHAVIOUR [None]
